FAERS Safety Report 6048517-0 (Version None)
Quarter: 2009Q1

REPORT INFORMATION
  Report Type: 
  Country: None (occurrence: None)
  Receive Date: 20090123
  Receipt Date: 20090120
  Transmission Date: 20090719
  Serious: Yes (Hospitalization)
  Sender: FDA-Public Use
  Company Number: B0555583A

PATIENT
  Age: 81 Year
  Sex: Male

DRUGS (5)
  1. VALTREX [Suspect]
     Indication: HERPES ZOSTER
     Route: 048
     Dates: start: 20080719, end: 20080721
  2. ADALAT [Concomitant]
     Indication: HERPES ZOSTER
     Route: 048
     Dates: start: 20080719, end: 20080721
  3. SIMVASTATINA [Concomitant]
     Route: 048
  4. LORAZEPAM [Concomitant]
     Route: 048
  5. ACETAMINOPHEN [Concomitant]
     Indication: HERPES ZOSTER
     Route: 048
     Dates: start: 20080719, end: 20080721

REACTIONS (3)
  - COMMUNICATION DISORDER [None]
  - CONFUSIONAL STATE [None]
  - MUSCULAR WEAKNESS [None]
